FAERS Safety Report 5752697-1 (Version None)
Quarter: 2008Q2

REPORT INFORMATION
  Report Type: 
  Country: None (occurrence: None)
  Receive Date: 20080529
  Receipt Date: 20080515
  Transmission Date: 20081010
  Serious: Yes (Other)
  Sender: FDA-Public Use
  Company Number: DE-WYE-H04249808

PATIENT
  Sex: Male
  Weight: 84 kg

DRUGS (8)
  1. PANTOPRAZOLE SODIUM [Suspect]
     Dosage: UNKNOWN
  2. ATORVASTATIN CALCIUM [Interacting]
     Dosage: UNKNOWN
  3. RASILEZ [Interacting]
     Indication: PROPHYLAXIS
     Dosage: 150 MG UNKNOWN FREQUENCY
     Route: 048
  4. RASILEZ [Interacting]
     Indication: CARDIAC DISORDER
  5. ACETYLSALICYLIC ACID SRT [Concomitant]
     Indication: PROPHYLAXIS
  6. LASIX [Concomitant]
     Dosage: UNKNOWN
  7. MARCUMAR [Interacting]
     Dosage: UNKNOWN
  8. OMEPRAZOLE [Interacting]
     Dates: start: 20080301

REACTIONS (2)
  - DRUG INTERACTION [None]
  - INTERNATIONAL NORMALISED RATIO INCREASED [None]
